FAERS Safety Report 23686292 (Version 2)
Quarter: 2024Q2

REPORT INFORMATION
  Report Type: Spontaneous
  Country: DE (occurrence: DE)
  Receive Date: 20240329
  Receipt Date: 20240408
  Transmission Date: 20240716
  Serious: Yes (Hospitalization, Other)
  Sender: FDA-Public Use
  Company Number: DE-ADVANZ PHARMA-202403002672

PATIENT

DRUGS (25)
  1. ZONISAMIDE [Suspect]
     Active Substance: ZONISAMIDE
     Indication: Partial seizures
     Dosage: UNK
     Route: 065
  2. TOPIRAMATE [Suspect]
     Active Substance: TOPIRAMATE
     Indication: Partial seizures
     Dosage: UNK
     Route: 065
  3. VIGABATRIN [Suspect]
     Active Substance: VIGABATRIN
     Indication: Partial seizures
     Dosage: UNK
     Route: 065
  4. CARBAMAZEPINE [Suspect]
     Active Substance: CARBAMAZEPINE
     Indication: Partial seizures
     Dosage: UNK
     Route: 065
  5. SULTHIAME [Suspect]
     Active Substance: SULTHIAME
     Indication: Partial seizures
     Dosage: UNK
     Route: 065
  6. LACOSAMIDE [Suspect]
     Active Substance: LACOSAMIDE
     Indication: Tuberous sclerosis complex
     Dosage: UNK
     Route: 065
  7. LACOSAMIDE [Suspect]
     Active Substance: LACOSAMIDE
     Indication: Partial seizures
  8. CANNABIDIOL [Interacting]
     Active Substance: CANNABIDIOL
     Indication: Tuberous sclerosis complex
     Dosage: 200 MG, QD (SOLUTION, 9.3 MG/KG/DAY), SOLUTION
     Route: 065
  9. CANNABIDIOL [Interacting]
     Active Substance: CANNABIDIOL
     Indication: Epilepsy
     Dosage: 500 MG, QD (SOLUTION, 20.4 MG/KG/DAY), SOLUTION
     Route: 065
  10. CANNABIDIOL [Interacting]
     Active Substance: CANNABIDIOL
     Dosage: UNK
     Route: 065
     Dates: start: 20180928, end: 201903
  11. EVEROLIMUS [Interacting]
     Active Substance: EVEROLIMUS
     Indication: Epilepsy
     Dosage: 0.6 MG/KG, QD
     Route: 065
  12. EVEROLIMUS [Interacting]
     Active Substance: EVEROLIMUS
     Dosage: 0.3 MG/KG, QD
     Route: 065
  13. EVEROLIMUS [Interacting]
     Active Substance: EVEROLIMUS
     Dosage: 0.15 MG/KG, QD
     Route: 065
  14. EVEROLIMUS [Interacting]
     Active Substance: EVEROLIMUS
     Dosage: 5 MG, QD
     Route: 048
     Dates: start: 20190928
  15. EVEROLIMUS [Interacting]
     Active Substance: EVEROLIMUS
     Dosage: 0.13 MG/KG, QD
     Route: 065
  16. EVEROLIMUS [Interacting]
     Active Substance: EVEROLIMUS
     Dosage: 0.15 MG/KG, QD (INITIATION DAILY DOSE OF 0.15 MG/KG/DAY TO MAXIMUM DOSE OF 0.6MG/KG/DAY, REDUCED TO
     Route: 065
     Dates: start: 201712
  17. EVEROLIMUS [Interacting]
     Active Substance: EVEROLIMUS
     Dosage: 0.6 MG/KG, QD
     Route: 065
     Dates: start: 2018
  18. EVEROLIMUS [Interacting]
     Active Substance: EVEROLIMUS
     Dosage: 0.3 MG/KG, QD
     Route: 065
     Dates: start: 2018
  19. LAMOTRIGINE [Suspect]
     Active Substance: LAMOTRIGINE
     Indication: Tuberous sclerosis complex
     Dosage: UNK
     Route: 065
  20. LAMOTRIGINE [Suspect]
     Active Substance: LAMOTRIGINE
     Indication: Partial seizures
  21. OXCARBAZEPINE [Suspect]
     Active Substance: OXCARBAZEPINE
     Indication: Partial seizures
     Dosage: UNK
     Route: 065
  22. VALPROATE [Suspect]
     Active Substance: VALPROIC ACID
     Indication: Partial seizures
     Dosage: UNK
     Route: 065
  23. LEVETIRACETAM [Suspect]
     Active Substance: LEVETIRACETAM
     Indication: Partial seizures
     Dosage: UNK
  24. CLOBAZAM [Interacting]
     Active Substance: CLOBAZAM
     Indication: Tuberous sclerosis complex
     Dosage: 5 MG, QD (2.5 MG, BID)
     Route: 065
  25. PROPRANOLOL [Concomitant]
     Active Substance: PROPRANOLOL HYDROCHLORIDE
     Indication: Tuberous sclerosis complex
     Dosage: UNK
     Route: 065

REACTIONS (8)
  - Epilepsy [Unknown]
  - Tonic convulsion [Unknown]
  - Drug ineffective [Unknown]
  - Drug interaction [Unknown]
  - Drug interaction [Recovered/Resolved]
  - Drug level increased [Recovered/Resolved]
  - Drug level increased [Not Recovered/Not Resolved]
  - Product use issue [Unknown]

NARRATIVE: CASE EVENT DATE: 20181027
